FAERS Safety Report 4538198-7 (Version None)
Quarter: 2004Q4

REPORT INFORMATION
  Report Type: 
  Country: None (occurrence: None)
  Receive Date: 20041221
  Receipt Date: 20041208
  Transmission Date: 20050328
  Serious: Yes (Hospitalization)
  Sender: FDA-Public Use
  Company Number: 2004109859

PATIENT
  Sex: 0

DRUGS (2)
  1. GEODON [Suspect]
     Indication: ILL-DEFINED DISORDER
     Dosage: 80 MG (40 MG, 1 IN 1 D), ORAL
     Route: 048
     Dates: start: 20041103, end: 20041118
  2. ALPRAZOLAM [Concomitant]

REACTIONS (2)
  - DYSTONIA [None]
  - SUICIDAL IDEATION [None]
